FAERS Safety Report 6667858-7 (Version None)
Quarter: 2010Q2

REPORT INFORMATION
  Report Type: 
  Country: None (occurrence: None)
  Receive Date: 20100405
  Receipt Date: 20100323
  Transmission Date: 20101027
  Serious: Yes (Hospitalization)
  Sender: FDA-Public Use
  Company Number: FR-PFIZER INC-2010037496

PATIENT
  Age: 61 Year
  Sex: Male

DRUGS (3)
  1. CAMPTOSAR [Suspect]
     Indication: NEOPLASM RECURRENCE
     Dosage: 360 MG
     Route: 042
     Dates: start: 20080107
  2. ERBITUX [Suspect]
     Indication: NEOPLASM RECURRENCE
     Dosage: 510 MG, WEEKLY
     Route: 042
     Dates: start: 20070101
  3. ERBITUX [Suspect]
     Dosage: 1 G, EVERY 2 WEEKS
     Route: 042
     Dates: start: 20090908

REACTIONS (4)
  - ECZEMA [None]
  - EOSINOPHILIA [None]
  - PRURITUS [None]
  - RENAL FAILURE ACUTE [None]
